FAERS Safety Report 11690438 (Version 1)
Quarter: 2015Q4

REPORT INFORMATION
  Report Type: Spontaneous
  Country: JP (occurrence: JP)
  Receive Date: 20151102
  Receipt Date: 20151102
  Transmission Date: 20160304
  Serious: Yes (Life-Threatening, Hospitalization, Other)
  Sender: FDA-Public Use
  Company Number: JP-BRISTOL-MYERS SQUIBB COMPANY-BMS-2015-073471

PATIENT
  Age: 56 Year
  Sex: Male

DRUGS (2)
  1. TOPOTECIN [Concomitant]
     Active Substance: IRINOTECAN HYDROCHLORIDE
     Indication: RECTAL CANCER
     Dosage: 100 MG, QD
     Route: 041
     Dates: start: 20151008, end: 20151008
  2. ERBITUX [Suspect]
     Active Substance: CETUXIMAB
     Indication: RECTAL CANCER
     Dosage: 700 MG, QD
     Route: 041
     Dates: start: 20151008, end: 20151008

REACTIONS (4)
  - Pyelonephritis [Not Recovered/Not Resolved]
  - Sepsis [Unknown]
  - Disseminated intravascular coagulation [Unknown]
  - Device occlusion [Not Recovered/Not Resolved]

NARRATIVE: CASE EVENT DATE: 20151011
